FAERS Safety Report 6302153-7 (Version None)
Quarter: 2009Q3

REPORT INFORMATION
  Report Type: 
  Country: None (occurrence: None)
  Receive Date: 20090807
  Receipt Date: 20090727
  Transmission Date: 20100115
  Serious: Yes (Hospitalization)
  Sender: FDA-Public Use
  Company Number: ES-GENENTECH-287914

PATIENT
  Sex: Female

DRUGS (3)
  1. TRASTUZUMAB [Suspect]
     Indication: BREAST CANCER
     Dosage: 776 MG, Q3W
     Route: 042
     Dates: start: 20090713
  2. CARBOPLATIN [Suspect]
     Indication: BREAST CANCER
     Dosage: 750 MG, Q3W
     Route: 042
     Dates: start: 20090713
  3. DOCETAXEL [Suspect]
     Indication: BREAST CANCER
     Dosage: 146 MG, Q3W
     Route: 042
     Dates: start: 20090713

REACTIONS (1)
  - MUCOSAL INFLAMMATION [None]
